FAERS Safety Report 9079732 (Version 1)
Quarter: 2013Q1

REPORT INFORMATION
  Report Type: Spontaneous
  Country: US (occurrence: US)
  Receive Date: 20130215
  Receipt Date: 20130215
  Transmission Date: 20140127
  Serious: Yes (Other)
  Sender: FDA-Public Use
  Company Number: US-GLAXOSMITHKLINE-A1011687A

PATIENT
  Age: 9 Year
  Sex: Male

DRUGS (2)
  1. FLOVENT [Suspect]
     Indication: ASTHMA
     Dosage: 2PUFF TWICE PER DAY
     Route: 055
     Dates: start: 201002
  2. VITAMINS [Concomitant]

REACTIONS (4)
  - Coeliac disease [Unknown]
  - Abdominal pain upper [Unknown]
  - Anti-transglutaminase antibody increased [Unknown]
  - Off label use [Unknown]
